FAERS Safety Report 4606249-7 (Version None)
Quarter: 2005Q1

REPORT INFORMATION
  Report Type: 
  Country: None (occurrence: None)
  Receive Date: 20050311
  Receipt Date: 20050113
  Transmission Date: 20050727
  Serious: Yes (Hospitalization)
  Sender: FDA-Public Use
  Company Number: CZ-ABBOTT-05P-217-0286759-00

PATIENT
  Sex: Male
  Weight: 82 kg

DRUGS (15)
  1. HUMIRA [Suspect]
     Indication: RHEUMATOID ARTHRITIS
     Dosage: 40 MG
     Route: 058
     Dates: start: 20031118, end: 20041116
  2. PREDNISONE [Concomitant]
     Indication: RHEUMATOID ARTHRITIS
     Route: 048
     Dates: start: 20011005
  3. TRAMADOL HCL [Concomitant]
     Indication: RHEUMATOID ARTHRITIS
     Route: 048
     Dates: start: 20011015
  4. ERGOCALCIFEROL [Concomitant]
     Indication: OSTEOPENIA
     Route: 048
     Dates: start: 20030114
  5. ZOPICLONUM [Concomitant]
     Indication: INSOMNIA
     Route: 048
     Dates: start: 20030623
  6. CALCIUM GLUCONATE [Concomitant]
     Indication: OSTEOPENIA
     Route: 048
     Dates: start: 20030114
  7. BROMAZEPAM [Concomitant]
     Indication: ASTHENIA
     Route: 048
     Dates: start: 20010901, end: 20041108
  8. BISOPROLOL FUMARATE [Concomitant]
     Indication: HYPERTENSION
     Route: 048
     Dates: start: 20040624
  9. TELMISARTAN [Concomitant]
     Indication: HYPERTENSION
     Route: 048
     Dates: start: 20040624
  10. HYDROCHLOROTHIAZIDE [Concomitant]
     Indication: HYPERTENSION
     Route: 048
     Dates: start: 20040624
  11. AMILORIDE [Concomitant]
     Indication: HYPERTENSION
     Route: 048
     Dates: start: 20040624
  12. VALDECOXIB [Concomitant]
     Indication: RHEUMATOID ARTHRITIS
     Route: 048
     Dates: start: 20040728
  13. RILMENIDINE [Concomitant]
     Indication: HYPERTENSION
     Route: 048
     Dates: start: 20040624
  14. CITALOPRAM HYDROBROMIDE [Concomitant]
     Indication: ASTHENIA
     Route: 048
     Dates: start: 20040624, end: 20041129
  15. LACIDIPINE [Concomitant]
     Indication: HYPERTENSION
     Route: 048
     Dates: start: 20041101

REACTIONS (2)
  - BACK PAIN [None]
  - NEUROLOGICAL INFECTION [None]
